FAERS Safety Report 8788324 (Version 1)
Quarter: 2012Q4

REPORT INFORMATION
  Report Type: 
  Country: US (occurrence: US)
  Receive Date: 20120914
  Receipt Date: 20120914
  Transmission Date: 20130627
  Serious: No
  Sender: FDA-Public Use
  Company Number: US-VERTEX PHARMACEUTICAL INC.-AE-2012-011681

PATIENT
  Age: 58 None
  Sex: Female
  Weight: 75.46 kg

DRUGS (3)
  1. INCIVEK [Suspect]
     Indication: HEPATITIS C
     Route: 048
     Dates: start: 20120712
  2. RIBAPAK [Concomitant]
     Indication: HEPATITIS C
     Dates: start: 20120712
  3. PEGASYS [Concomitant]
     Indication: HEPATITIS C
     Route: 058
     Dates: start: 20120712

REACTIONS (5)
  - Pollakiuria [Unknown]
  - Micturition urgency [Unknown]
  - Influenza like illness [Unknown]
  - Rash papular [Recovered/Resolved]
  - Nausea [Not Recovered/Not Resolved]
